FAERS Safety Report 20685549 (Version 1)
Quarter: 2022Q2

REPORT INFORMATION
  Report Type: Spontaneous
  Country: US (occurrence: US)
  Receive Date: 20220407
  Receipt Date: 20220407
  Transmission Date: 20220721
  Serious: No
  Sender: FDA-Public Use
  Company Number: US-PFIZER INC-2020447053

PATIENT
  Age: 48 Year
  Sex: Female

DRUGS (1)
  1. LYRICA [Suspect]
     Active Substance: PREGABALIN
     Indication: Complex regional pain syndrome
     Dosage: 150 MG 1 OR 2 ORAL BID (TWICE A DAY)
     Route: 048

REACTIONS (3)
  - Withdrawal syndrome [Unknown]
  - Musculoskeletal disorder [Unknown]
  - Off label use [Unknown]
